FAERS Safety Report 20382081 (Version 1)
Quarter: 2022Q1

REPORT INFORMATION
  Report Type: Spontaneous
  Country: US (occurrence: US)
  Receive Date: 20220127
  Receipt Date: 20220127
  Transmission Date: 20220423
  Serious: No
  Sender: FDA-Public Use
  Company Number: US-009507513-2201USA007152

PATIENT
  Sex: Female

DRUGS (11)
  1. TEMODAR [Suspect]
     Active Substance: TEMOZOLOMIDE
     Indication: Neuroblastoma
     Dosage: UNK
     Route: 048
  2. TEMODAR [Suspect]
     Active Substance: TEMOZOLOMIDE
     Indication: Metastases to liver
  3. TEMODAR [Suspect]
     Active Substance: TEMOZOLOMIDE
     Indication: Metastases to pleura
  4. DABRAFENIB [Concomitant]
     Active Substance: DABRAFENIB
     Dosage: UNK
     Dates: start: 20171221
  5. TRAMETINIB [Concomitant]
     Active Substance: TRAMETINIB
     Dosage: UNK
     Dates: start: 20171221
  6. IRINOTECAN [Concomitant]
     Active Substance: IRINOTECAN
     Dosage: UNK
  7. DINUTUXIMAB [Concomitant]
     Active Substance: DINUTUXIMAB
  8. GRANULOCYTE-MACROPHAGE COLONY-STIMULATING FACTOR [Concomitant]
     Active Substance: GRANULOCYTE-MACROPHAGE COLONY-STIMULATING FACTOR
  9. CYCLOPHOSPHAMIDE;DOXORUBICIN;VINCRISTINE [Concomitant]
  10. CISPLATIN [Concomitant]
     Active Substance: CISPLATIN
  11. ETOPOSIDE [Concomitant]
     Active Substance: ETOPOSIDE

REACTIONS (2)
  - Product use in unapproved indication [Unknown]
  - Product use issue [Unknown]
